FAERS Safety Report 9523701 (Version 7)
Quarter: 2014Q1

REPORT INFORMATION
  Report Type: Report from Study
  Country: FR (occurrence: FR)
  Receive Date: 20130913
  Receipt Date: 20140222
  Transmission Date: 20141002
  Serious: Yes (Hospitalization)
  Sender: FDA-Public Use
  Company Number: FR-ROCHE-1273992

PATIENT
  Age: 66 Year
  Sex: Male
  Weight: 46 kg

DRUGS (13)
  1. VISMODEGIB [Suspect]
     Indication: BASAL CELL CARCINOMA
     Dosage: LAST DOSE PRIOR TO SAE WAS 03/SEP/2013. TEMPORARILY INTERRUPTED.
     Route: 048
     Dates: start: 20130801
  2. VISMODEGIB [Suspect]
     Route: 048
     Dates: start: 20130911
  3. NISIS [Concomitant]
     Indication: HYPERTENSION
     Route: 065
     Dates: start: 200806, end: 20130812
  4. CORDARONE [Concomitant]
     Indication: ARRHYTHMIA
     Route: 065
     Dates: start: 199901
  5. AERIUS [Concomitant]
     Indication: RHINITIS ALLERGIC
     Route: 065
     Dates: start: 200506
  6. NASACORT [Concomitant]
     Indication: RHINITIS ALLERGIC
     Route: 065
     Dates: start: 200506
  7. TANGANIL [Concomitant]
     Indication: DIZZINESS
     Route: 065
     Dates: start: 201001
  8. TAHOR [Concomitant]
     Indication: DYSLIPIDAEMIA
     Route: 065
     Dates: start: 201001
  9. NIDREL [Concomitant]
     Indication: HYPERTENSION
     Route: 065
     Dates: start: 20130813, end: 20130829
  10. AMLOR [Concomitant]
     Indication: HYPERTENSION
     Route: 065
     Dates: start: 20130830
  11. PARIET [Concomitant]
     Indication: GASTROOESOPHAGEAL REFLUX DISEASE
     Route: 065
     Dates: start: 201301, end: 20130812
  12. AZANTAC [Concomitant]
     Indication: GASTROOESOPHAGEAL REFLUX DISEASE
     Route: 065
     Dates: start: 20130813, end: 20130829
  13. GAVISCON (ALGINIC ACID) [Concomitant]
     Route: 065
     Dates: start: 20130830

REACTIONS (1)
  - Hypercalcaemia [Recovered/Resolved]
